FAERS Safety Report 4303532-X (Version None)
Quarter: 2004Q1

REPORT INFORMATION
  Report Type: 
  Country: None (occurrence: None)
  Receive Date: 20040217
  Receipt Date: 20040203
  Transmission Date: 20041129
  Serious: Yes (Death)
  Sender: FDA-Public Use
  Company Number: 235209

PATIENT
  Age: 19 Year
  Sex: Male

DRUGS (1)
  1. NOVOSEVEN [Suspect]
     Indication: PROPHYLAXIS
     Dosage: 2.4 MG, SINGLE, INTRAVENOUS
     Route: 042
     Dates: start: 20040203, end: 20040203

REACTIONS (3)
  - ANAEMIA [None]
  - CARDIAC ARREST [None]
  - OXYGEN SATURATION DECREASED [None]
